FAERS Safety Report 7386144-3 (Version None)
Quarter: 2011Q1

REPORT INFORMATION
  Report Type: 
  Country: None (occurrence: None)
  Receive Date: 20110331
  Receipt Date: 20110325
  Transmission Date: 20110831
  Serious: Yes (Hospitalization)
  Sender: FDA-Public Use
  Company Number: US-B.I. PHARMACEUTICALS,INC./RIDGEFIELD-2011-BP-07459BP

PATIENT
  Sex: Male

DRUGS (17)
  1. LISINOPRIL [Concomitant]
     Indication: HYPERTENSION
     Dosage: 10 MG
     Route: 048
  2. LEVOTHYROXINE SODIUM [Concomitant]
     Indication: THYROID DISORDER
     Dosage: 100 MCG
     Route: 048
  3. METOPROLOL [Concomitant]
     Indication: CARDIAC DISORDER
     Dosage: 25 MG
     Route: 048
  4. POTASSIUM CHLORIDE [Concomitant]
     Dosage: 10 MEQ
     Route: 048
  5. INSULIN [Concomitant]
     Indication: DIABETES MELLITUS
     Dosage: INJECTION, 7 UNITS BID
  6. PRADAXA [Suspect]
     Indication: ATRIAL FIBRILLATION
     Dosage: 300 MG
     Route: 048
     Dates: start: 20110221
  7. AMIODARONE HCL [Concomitant]
     Indication: CARDIAC DISORDER
     Dosage: 200 MG
     Route: 048
  8. SPIRIVA [Suspect]
     Indication: BRONCHITIS
  9. ADVAIR DISKUS 100/50 [Concomitant]
     Indication: BRONCHITIS
  10. SERTRALINE HYDROCHLORIDE [Concomitant]
     Indication: DEPRESSION
     Dosage: 100 MG
     Route: 048
  11. FUROSEMIDE [Concomitant]
     Indication: FLUID RETENTION
     Dosage: 40 MG
     Route: 048
  12. ADVAIR DISKUS 100/50 [Concomitant]
     Indication: CHRONIC OBSTRUCTIVE PULMONARY DISEASE
     Dosage: INHALER, 250/50, TWICE DAILY
     Route: 055
  13. VYTORIN [Concomitant]
     Indication: HYPERTENSION
     Dosage: 10/80 ONE DAILY
     Route: 048
  14. GLYB/METFORMIN [Concomitant]
     Indication: DIABETES MELLITUS
     Dosage: 5/500 TWO TABS BID
     Route: 048
  15. ASPIRIN [Concomitant]
     Indication: PROPHYLAXIS
     Dosage: 81 MG
     Route: 048
  16. SPIRIVA [Suspect]
     Indication: CHRONIC OBSTRUCTIVE PULMONARY DISEASE
     Dosage: 18 MCG
     Route: 055
     Dates: start: 20060101
  17. KEPPRA [Concomitant]
     Indication: CONVULSION
     Dosage: 1/2 TAB DAILY
     Route: 048

REACTIONS (6)
  - AORTIC VALVE REPLACEMENT [None]
  - PNEUMONIA [None]
  - STREPTOCOCCUS TEST POSITIVE [None]
  - FALL [None]
  - MYOCARDIAL INFARCTION [None]
  - DIARRHOEA [None]
